FAERS Safety Report 24209298 (Version 2)
Quarter: 2024Q3

REPORT INFORMATION
  Report Type: Spontaneous
  Country: CN (occurrence: CN)
  Receive Date: 20240814
  Receipt Date: 20240904
  Transmission Date: 20241017
  Serious: Yes (Hospitalization, Other)
  Sender: RANBAXY
  Company Number: CN-SUN PHARMACEUTICAL INDUSTRIES LTD-2024R1-462090

PATIENT
  Age: 71 Year
  Sex: Male

DRUGS (4)
  1. SODIUM CHLORIDE [Suspect]
     Active Substance: SODIUM CHLORIDE
     Indication: Hypertension
     Dosage: UNK ( 250 ML OF 0.9%,ONCE DAILY)
     Route: 042
  2. SODIUM CHLORIDE [Suspect]
     Active Substance: SODIUM CHLORIDE
     Indication: Coronary artery disease
  3. PANAX NOTOGINSENG ROOT [Suspect]
     Active Substance: PANAX NOTOGINSENG ROOT
     Indication: Hypertension
     Dosage: UNK (800 MG)
     Route: 042
  4. PANAX NOTOGINSENG ROOT [Suspect]
     Active Substance: PANAX NOTOGINSENG ROOT
     Indication: Coronary artery disease

REACTIONS (1)
  - Drug-induced liver injury [Recovered/Resolved]
